FAERS Safety Report 14882030 (Version 2)
Quarter: 2018Q3

REPORT INFORMATION
  Report Type: Spontaneous
  Country: DE (occurrence: DE)
  Receive Date: 20180511
  Receipt Date: 20180806
  Transmission Date: 20181010
  Serious: Yes (Life-Threatening, Hospitalization, Other)
  Sender: FDA-Public Use
  Company Number: DE-GLAXOSMITHKLINE-DE2018GSK071628

PATIENT
  Age: 34 Year
  Sex: Female
  Weight: 69 kg

DRUGS (13)
  1. VITAMIN B12 [Concomitant]
     Active Substance: CYANOCOBALAMIN
     Indication: VITAMIN B12 DEFICIENCY
     Dosage: 1000 UG, CYC
  2. QUILONUM RETARD [Concomitant]
     Active Substance: LITHIUM CARBONATE
     Indication: DEPRESSION
     Dosage: 675 MG, QD
     Dates: start: 2017, end: 201803
  3. PANTOPRAZOLE [Concomitant]
     Active Substance: PANTOPRAZOLE
     Indication: PROPHYLAXIS
     Dosage: 20 MG, QD
     Dates: start: 20180219
  4. TRAZODONE [Concomitant]
     Active Substance: TRAZODONE HYDROCHLORIDE
     Indication: BIPOLAR DISORDER
  5. L?THYROXIN [Concomitant]
     Active Substance: LEVOTHYROXINE SODIUM
     Indication: HYPOTHYROIDISM
     Dosage: 50 UNK, QD
  6. RUPAFIN [Concomitant]
     Active Substance: RUPATADINE FUMARATE
     Indication: URTICARIA CHRONIC
     Dosage: 10 MG, PRN
  7. QUILONUM RETARD [Concomitant]
     Active Substance: LITHIUM CARBONATE
     Indication: BIPOLAR DISORDER
  8. TRAZODONE [Concomitant]
     Active Substance: TRAZODONE HYDROCHLORIDE
     Indication: DEPRESSION
     Dosage: UNK UNK, Z
     Dates: start: 2017, end: 201803
  9. IBUHEXAL [Concomitant]
     Active Substance: IBUPROFEN
     Indication: PROCTALGIA
     Dosage: 600 MG, Z
     Dates: start: 20180219, end: 20180303
  10. LAMICTAL [Suspect]
     Active Substance: LAMOTRIGINE
     Indication: DEPRESSION
     Dosage: 25 MG, QD
     Dates: start: 20180213, end: 20180220
  11. LAMICTAL [Suspect]
     Active Substance: LAMOTRIGINE
     Indication: BIPOLAR DISORDER
     Dosage: 50 MG, QD
     Dates: start: 20180221, end: 20180302
  12. RISPERIDON [Concomitant]
     Active Substance: RISPERIDONE
     Indication: DEPRESSION
     Dosage: 0.25 MG, TID
     Dates: start: 20180130
  13. RISPERIDON [Concomitant]
     Active Substance: RISPERIDONE
     Indication: BIPOLAR DISORDER

REACTIONS (24)
  - Blister [Recovering/Resolving]
  - Gastrointestinal disorder [Unknown]
  - Conjunctival scar [Not Recovered/Not Resolved]
  - Hospitalisation [Unknown]
  - Lacrimation increased [Recovering/Resolving]
  - Pneumonia [Recovering/Resolving]
  - Wrong dose [Unknown]
  - Oral disorder [Unknown]
  - Dry eye [Not Recovered/Not Resolved]
  - Respiratory disorder [Not Recovered/Not Resolved]
  - Asthma [Not Recovered/Not Resolved]
  - Lip swelling [Recovering/Resolving]
  - Skin exfoliation [Recovering/Resolving]
  - Toxic epidermal necrolysis [Recovering/Resolving]
  - Septic shock [Recovering/Resolving]
  - Vision blurred [Recovering/Resolving]
  - Tracheal disorder [Unknown]
  - Movement disorder [Recovering/Resolving]
  - Stevens-Johnson syndrome [Recovering/Resolving]
  - Rash pruritic [Recovering/Resolving]
  - Conjunctivitis [Recovering/Resolving]
  - Distichiasis [Not Recovered/Not Resolved]
  - Poikiloderma [Recovering/Resolving]
  - Scar [Recovering/Resolving]

NARRATIVE: CASE EVENT DATE: 2018
